FAERS Safety Report 23559381 (Version 1)
Quarter: 2024Q1

REPORT INFORMATION
  Report Type: Spontaneous
  Country: US (occurrence: None)
  Receive Date: 20240223
  Receipt Date: 20240223
  Transmission Date: 20240410
  Serious: Yes (Life-Threatening, Hospitalization, Disabling, Other)
  Sender: FDA-Public Use
  Company Number: None

PATIENT
  Sex: Male

DRUGS (1)
  1. AVASTIN [Suspect]
     Active Substance: BEVACIZUMAB

REACTIONS (7)
  - Cerebrovascular accident [None]
  - Blood potassium abnormal [None]
  - Nonspecific reaction [None]
  - Myocardial infarction [None]
  - Renal failure [None]
  - Protein urine present [None]
  - Hypertension [None]

NARRATIVE: CASE EVENT DATE: 20230101
